FAERS Safety Report 4854246-9 (Version None)
Quarter: 2005Q4

REPORT INFORMATION
  Report Type: 
  Country: None (occurrence: None)
  Receive Date: 20051213
  Receipt Date: 20051213
  Transmission Date: 20060501
  Serious: Yes (Life-Threatening, Hospitalization, Other)
  Sender: FDA-Public Use
  Company Number: None

PATIENT
  Age: 37 Year
  Sex: Male
  Weight: 86.1834 kg

DRUGS (3)
  1. LITHOBID [Suspect]
     Indication: BIPOLAR DISORDER
     Dosage: 900MG DAILY PO
     Route: 048
     Dates: start: 19980101, end: 20030301
  2. HALDOL [Suspect]
     Indication: BIPOLAR DISORDER
     Dosage: 1 MG DAILY PO
     Route: 048
     Dates: start: 19980101, end: 20030301
  3. DIPTHERIA/TETANUS IMMUNIZATION [Concomitant]

REACTIONS (15)
  - AMNESIA [None]
  - BURNING SENSATION [None]
  - CHEST PAIN [None]
  - COORDINATION ABNORMAL [None]
  - DISTURBANCE IN ATTENTION [None]
  - DIZZINESS [None]
  - DYSPNOEA [None]
  - JAW DISORDER [None]
  - NAUSEA [None]
  - PANIC ATTACK [None]
  - PARANOIA [None]
  - SENSORY DISTURBANCE [None]
  - SINUS DISORDER [None]
  - TINNITUS [None]
  - VISUAL ACUITY REDUCED [None]
